FAERS Safety Report 5630695-6 (Version None)
Quarter: 2008Q1

REPORT INFORMATION
  Report Type: 
  Country: None (occurrence: None)
  Receive Date: 20080219
  Receipt Date: 20080208
  Transmission Date: 20080703
  Serious: Yes (Life-Threatening)
  Sender: FDA-Public Use
  Company Number: GB-MERCK-0802USA02954

PATIENT
  Age: 49 Year
  Sex: Male
  Weight: 75 kg

DRUGS (5)
  1. PRINIVIL [Suspect]
     Indication: HYPERTENSION
     Route: 048
     Dates: start: 20070101, end: 20080116
  2. ZOCOR [Concomitant]
     Route: 048
     Dates: start: 20070101
  3. ASPIRIN [Concomitant]
     Route: 065
     Dates: start: 20070101
  4. AMLODIPINE BESYLATE [Concomitant]
     Route: 065
     Dates: start: 20070101
  5. ALLOPURINOL [Concomitant]
     Route: 065
     Dates: start: 20070101

REACTIONS (4)
  - ANGIOEDEMA [None]
  - EPIGLOTTITIS [None]
  - LIP SWELLING [None]
  - STRIDOR [None]
